FAERS Safety Report 9406436 (Version 1)
Quarter: 2013Q3

REPORT INFORMATION
  Report Type: Spontaneous
  Country: IT (occurrence: IT)
  Receive Date: 20130718
  Receipt Date: 20130718
  Transmission Date: 20140515
  Serious: Yes (Death, Other)
  Sender: FDA-Public Use
  Company Number: IT-PAR PHARMACEUTICAL, INC-2013SCPR006035

PATIENT
  Sex: 0

DRUGS (2)
  1. TRAMADOL [Suspect]
     Indication: PRODUCT USED FOR UNKNOWN INDICATION
     Dosage: UNK, UNKNOWN
     Route: 065
  2. CARBAMAZEPINE [Suspect]
     Indication: PRODUCT USED FOR UNKNOWN INDICATION
     Dosage: UNK, UNKNOWN
     Route: 065

REACTIONS (9)
  - Completed suicide [Fatal]
  - Toxicity to various agents [Fatal]
  - Intracardiac thrombus [Unknown]
  - Visceral congestion [Unknown]
  - Pulmonary oedema [Unknown]
  - Emphysema [Unknown]
  - Death [Fatal]
  - Respiratory depression [Fatal]
  - Cardiac arrest [Fatal]
